FAERS Safety Report 8371824-3 (Version None)
Quarter: 2012Q2

REPORT INFORMATION
  Report Type: 
  Country: None (occurrence: None)
  Receive Date: 20120518
  Receipt Date: 20120515
  Transmission Date: 20120825
  Serious: Yes (Hospitalization)
  Sender: FDA-Public Use
  Company Number: RO-ROCHE-701761

PATIENT
  Sex: Female
  Weight: 54 kg

DRUGS (7)
  1. XYZAL [Concomitant]
     Indication: PNEUMONIA
     Dates: start: 20100428, end: 20100502
  2. EURESPAL (INGREDIENTS UNKNOWN) [Concomitant]
     Indication: PNEUMONIA
     Dates: start: 20100428, end: 20100502
  3. FILGRASTIM [Concomitant]
     Indication: NEUTROPENIA
     Dates: start: 20091119, end: 20100602
  4. COPEGUS [Suspect]
     Route: 048
  5. COPEGUS [Suspect]
     Indication: HEPATITIS C
     Dosage: DOSE: 1000, FREQUENCY: DAILY
     Route: 048
     Dates: start: 20091106, end: 20101001
  6. CLARITHROMYCIN [Suspect]
     Indication: PNEUMONIA
     Dosage: DAILY
     Dates: start: 20100428, end: 20100502
  7. PEGASYS [Suspect]
     Indication: HEPATITIS C
     Route: 065
     Dates: start: 20091106, end: 20101001

REACTIONS (1)
  - BILIARY COLIC [None]
